FAERS Safety Report 9971041 (Version 2)
Quarter: 2014Q1

REPORT INFORMATION
  Report Type: Report from Study
  Country: US (occurrence: US)
  Receive Date: 20140306
  Receipt Date: 20140306
  Transmission Date: 20141002
  Serious: No
  Sender: FDA-Public Use
  Company Number: US-ABBVIE-13P-163-1129386-00

PATIENT
  Sex: Female

DRUGS (7)
  1. HUMIRA [Suspect]
     Indication: CROHN^S DISEASE
     Dosage: LOADED DOSE
     Route: 058
     Dates: start: 20130610, end: 20130610
  2. HUMIRA [Suspect]
     Dosage: LOADED DOSE
     Dates: start: 20130624, end: 20130624
  3. HUMIRA [Suspect]
     Dates: start: 20130708, end: 20130731
  4. HUMIRA [Suspect]
  5. BIRTH CONTROL PILL (SPECIFIC NAME AND DOSE NOT AVAILABLE) [Concomitant]
     Indication: CONTRACEPTION
  6. TYLENOL [Concomitant]
     Indication: PRODUCT USED FOR UNKNOWN INDICATION
  7. ZYRTEC [Concomitant]
     Indication: HYPERSENSITIVITY
     Dosage: 2-3 TIMES A WEEK

REACTIONS (4)
  - Lymphadenopathy [Not Recovered/Not Resolved]
  - Lymph node pain [Not Recovered/Not Resolved]
  - Acne [Recovering/Resolving]
  - Scar [Not Recovered/Not Resolved]
